FAERS Safety Report 8121234-9 (Version None)
Quarter: 2011Q4

REPORT INFORMATION
  Report Type: 
  Country: None (occurrence: None)
  Receive Date: 20111227
  Receipt Date: 20110916
  Transmission Date: 20120403
  Serious: No
  Sender: FDA-Public Use
  Company Number: PHEH2011US04405

PATIENT
  Age: 46 Year
  Sex: Female

DRUGS (10)
  1. PROVIGIL [Concomitant]
  2. GILENYA [Suspect]
     Dosage: QD
     Dates: start: 20110101
  3. PREVACID [Concomitant]
  4. OXYMORPHONE [Concomitant]
  5. QUININE SULFATE [Concomitant]
  6. MINOCYCLINE HCL [Concomitant]
  7. PERCOCET [Concomitant]
  8. FLEXERIL [Concomitant]
  9. PREMARIN [Concomitant]
  10. SYNTHROID [Concomitant]

REACTIONS (2)
  - DRUG DOSE OMISSION [None]
  - NO ADVERSE EVENT [None]
